FAERS Safety Report 8828616 (Version 1)
Quarter: 2012Q4

REPORT INFORMATION
  Report Type: Report from Study
  Country: JP (occurrence: JP)
  Receive Date: 20121005
  Receipt Date: 20121005
  Transmission Date: 20130627
  Serious: Yes (Life-Threatening, Hospitalization, Other)
  Sender: FDA-Public Use
  Company Number: JP-EISAI INC-E7389-02788-CLI-JP

PATIENT
  Age: 68 Year
  Sex: Female
  Weight: 51 kg

DRUGS (32)
  1. HALAVEN [Suspect]
     Indication: BREAST CANCER RECURRENT
     Route: 041
     Dates: start: 20120223, end: 20120405
  2. HALAVEN [Suspect]
     Indication: METASTASES TO LIVER
     Route: 041
     Dates: start: 20111110, end: 20111110
  3. HALAVEN [Suspect]
     Indication: METASTASES TO BONE
  4. MAGLAX [Concomitant]
     Route: 048
  5. METHYCOBAL [Concomitant]
     Route: 048
  6. MOHRUS TAPE [Concomitant]
     Route: 065
  7. PERORIC [Concomitant]
     Indication: PROPHYLAXIS
     Route: 048
  8. PYDOXAL [Concomitant]
     Route: 048
  9. CINAL [Concomitant]
     Route: 048
  10. MICARDIS [Concomitant]
     Route: 048
  11. ARTIST [Concomitant]
     Route: 048
  12. DIART [Concomitant]
     Route: 048
  13. ALDACTONE A [Concomitant]
     Route: 048
  14. DIGOXIN [Concomitant]
     Route: 048
  15. ACARDI [Concomitant]
     Route: 048
  16. MINOMYCIN [Concomitant]
     Route: 048
  17. PIMOBENDAN [Concomitant]
     Route: 048
  18. LOXOPROFEN SODIUM [Concomitant]
     Route: 048
  19. SPIRONOLACTONE [Concomitant]
     Route: 048
  20. TANADOPA [Concomitant]
     Route: 048
  21. LOXONIN [Concomitant]
     Route: 048
  22. MUCOSTA [Concomitant]
     Indication: PROPHYLAXIS
     Route: 048
  23. AZUNOL [Concomitant]
     Route: 065
  24. OXYCONTIN [Concomitant]
     Route: 048
  25. REBAMIPIDE [Concomitant]
     Route: 048
  26. FENTOS [Concomitant]
     Route: 065
  27. KENEI G [Concomitant]
  28. PURSENNID [Concomitant]
     Route: 048
  29. GRANISETRON HYROCHLORIDE [Concomitant]
     Indication: PROPHYLAXIS
     Route: 065
  30. ZOMETA [Concomitant]
     Indication: METASTASES TO BONE
     Route: 042
  31. SANMEL [Concomitant]
     Indication: PROPHYLAXIS
     Route: 048
  32. TAKEPRON [Concomitant]
     Indication: PROPHYLAXIS
     Route: 048

REACTIONS (5)
  - Circulatory collapse [Recovering/Resolving]
  - Stomatitis [Recovering/Resolving]
  - Febrile neutropenia [Recovering/Resolving]
  - Electrocardiogram QT prolonged [Recovered/Resolved]
  - Cardiac failure [Recovering/Resolving]
